FAERS Safety Report 20468280 (Version 1)
Quarter: 2022Q1

REPORT INFORMATION
  Report Type: Spontaneous
  Country: US (occurrence: None)
  Receive Date: 20220211
  Receipt Date: 20220211
  Transmission Date: 20220423
  Serious: Yes (Hospitalization)
  Sender: FDA-Public Use
  Company Number: None

PATIENT
  Age: 41 Year
  Sex: Female
  Weight: 91 kg

DRUGS (5)
  1. CILGAVIMAB\TIXAGEVIMAB [Suspect]
     Active Substance: CILGAVIMAB\TIXAGEVIMAB
     Indication: COVID-19
     Dates: start: 20220207, end: 20220207
  2. TACROLIMUS [Concomitant]
     Active Substance: TACROLIMUS
  3. SIROLIMUS [Concomitant]
     Active Substance: SIROLIMUS
  4. MYCOPHENOLIC ACID [Concomitant]
     Active Substance: MYCOPHENOLIC ACID
  5. PREDNISONE [Concomitant]
     Active Substance: PREDNISONE

REACTIONS (8)
  - Pyrexia [None]
  - Chills [None]
  - Headache [None]
  - Abdominal pain [None]
  - Feeling hot [None]
  - Rash erythematous [None]
  - Burning sensation [None]
  - Paraesthesia [None]

NARRATIVE: CASE EVENT DATE: 20220211
